FAERS Safety Report 22201960 (Version 1)
Quarter: 2023Q2

REPORT INFORMATION
  Report Type: Spontaneous
  Country: CN (occurrence: CN)
  Receive Date: 20230412
  Receipt Date: 20230412
  Transmission Date: 20230722
  Serious: Yes (Other)
  Sender: FDA-Public Use
  Company Number: CN-009507513-2304CHN001272

PATIENT
  Age: 64 Year
  Sex: Male

DRUGS (12)
  1. PEMBROLIZUMAB [Suspect]
     Active Substance: PEMBROLIZUMAB
     Indication: Cholangiocarcinoma
     Dosage: ADMINISTERED 2 MG/KG AS AN INTRAVENOUS INFUSION OVER 30 MIN EVERY 3 WEEKS
     Route: 042
     Dates: start: 202005
  2. PEMBROLIZUMAB [Suspect]
     Active Substance: PEMBROLIZUMAB
     Indication: Metastases to lymph nodes
     Dosage: ADMINISTERED 2 MG/KG AS AN INTRAVENOUS INFUSION OVER 30 MIN EVERY 3 WEEKS
     Route: 042
     Dates: start: 202112
  3. PEMBROLIZUMAB [Suspect]
     Active Substance: PEMBROLIZUMAB
     Indication: Metastases to bone
  4. LENVATINIB MESYLATE [Suspect]
     Active Substance: LENVATINIB MESYLATE
     Indication: Cholangiocarcinoma
     Dosage: EACH DAY AT A DOSE OF 12 MG PER DAY
     Route: 048
     Dates: start: 202005, end: 202006
  5. LENVATINIB MESYLATE [Suspect]
     Active Substance: LENVATINIB MESYLATE
     Indication: Metastases to lymph nodes
     Dosage: 8 MILLIGRAM, QD
     Route: 048
     Dates: start: 202006
  6. LENVATINIB MESYLATE [Suspect]
     Active Substance: LENVATINIB MESYLATE
     Indication: Metastases to bone
     Dosage: 12 MILLIGRAM, QD
     Route: 048
     Dates: start: 202112
  7. PYROTINIB [Suspect]
     Active Substance: PYROTINIB
     Indication: Cholangiocarcinoma
     Dosage: 80 MILLIGRAM, QD
     Route: 048
     Dates: start: 202005
  8. PYROTINIB [Suspect]
     Active Substance: PYROTINIB
     Indication: Metastases to lymph nodes
  9. PYROTINIB [Suspect]
     Active Substance: PYROTINIB
     Indication: Metastases to bone
  10. BEVACIZUMAB [Suspect]
     Active Substance: BEVACIZUMAB
     Indication: Cholangiocarcinoma
     Dosage: 15 MILLIGRAM/KILOGRAM, Q3W
     Route: 042
     Dates: start: 202112
  11. BEVACIZUMAB [Suspect]
     Active Substance: BEVACIZUMAB
     Indication: Metastases to lymph nodes
  12. BEVACIZUMAB [Suspect]
     Active Substance: BEVACIZUMAB
     Indication: Metastases to bone

REACTIONS (8)
  - Tumour pseudoprogression [Unknown]
  - Bowel movement irregularity [Unknown]
  - Proteinuria [Unknown]
  - Fatigue [Unknown]
  - Rash [Unknown]
  - Hypertension [Unknown]
  - Blood bilirubin increased [Unknown]
  - Off label use [Unknown]

NARRATIVE: CASE EVENT DATE: 20200101
